FAERS Safety Report 14068007 (Version 2)
Quarter: 2017Q4

REPORT INFORMATION
  Report Type: Spontaneous
  Country: CN (occurrence: CN)
  Receive Date: 20171010
  Receipt Date: 20171025
  Transmission Date: 20180321
  Serious: Yes (Hospitalization, Other)
  Sender: FDA-Public Use
  Company Number: CN-SUN PHARMACEUTICAL INDUSTRIES LTD-2017R1-151803

PATIENT
  Age: 49 Year
  Sex: Male

DRUGS (2)
  1. VENLAFAXINE [Suspect]
     Active Substance: VENLAFAXINE HYDROCHLORIDE
     Indication: SOMATIC SYMPTOM DISORDER
     Dosage: 225 MG, DAILY
     Route: 065
  2. PALIPERIDONE. [Interacting]
     Active Substance: PALIPERIDONE
     Indication: SOMATIC SYMPTOM DISORDER
     Dosage: 3 MG, DAILY
     Route: 065

REACTIONS (3)
  - Rash [Recovered/Resolved]
  - Drug interaction [Recovering/Resolving]
  - Dystonia [Recovering/Resolving]
